FAERS Safety Report 20668232 (Version 1)
Quarter: 2022Q2

REPORT INFORMATION
  Report Type: Report from Study
  Country: US (occurrence: US)
  Receive Date: 20220404
  Receipt Date: 20220404
  Transmission Date: 20220720
  Serious: Yes (Hospitalization)
  Sender: FDA-Public Use
  Company Number: US-ABBVIE-22K-163-4335818-00

PATIENT
  Age: 7 Year
  Sex: Female

DRUGS (1)
  1. LUPRON DEPOT-PED [Suspect]
     Active Substance: LEUPROLIDE ACETATE
     Indication: Precocious puberty
     Route: 065
     Dates: start: 20211222

REACTIONS (10)
  - Viral infection [Recovering/Resolving]
  - Limb discomfort [Unknown]
  - Pain in extremity [Unknown]
  - Hypophagia [Unknown]
  - Dizziness [Unknown]
  - Decreased appetite [Unknown]
  - Gait inability [Unknown]
  - Weight bearing difficulty [Unknown]
  - White blood cell count increased [Unknown]
  - Haemoglobin abnormal [Unknown]

NARRATIVE: CASE EVENT DATE: 20220301
